FAERS Safety Report 7382238-7 (Version None)
Quarter: 2011Q1

REPORT INFORMATION
  Report Type: 
  Country: None (occurrence: None)
  Receive Date: 20110329
  Receipt Date: 20110322
  Transmission Date: 20110831
  Serious: Yes (Hospitalization, Disabling)
  Sender: FDA-Public Use
  Company Number: US-MERCK-1103USA00413

PATIENT
  Age: 69 Year
  Sex: Female

DRUGS (3)
  1. FOSAMAX [Suspect]
     Route: 048
     Dates: start: 20000101, end: 20020101
  2. VITAMINS (UNSPECIFIED) [Concomitant]
     Route: 065
     Dates: start: 20000101
  3. FOSAMAX [Suspect]
     Indication: OSTEOPOROSIS
     Route: 048
     Dates: start: 20000101, end: 20080101

REACTIONS (7)
  - CATARACT [None]
  - TOOTH DISORDER [None]
  - FALL [None]
  - MALAISE [None]
  - THYROID DISORDER [None]
  - FEMUR FRACTURE [None]
  - IMPAIRED HEALING [None]
